FAERS Safety Report 24238052 (Version 5)
Quarter: 2025Q3

REPORT INFORMATION
  Report Type: Other
  Country: US (occurrence: US)
  Receive Date: 20240822
  Receipt Date: 20250917
  Transmission Date: 20251021
  Serious: No
  Sender: TRAVERE THERAPEUTICS
  Company Number: US-TRAVERE-2024TVT00780

PATIENT
  Age: 60 Year
  Sex: Male

DRUGS (3)
  1. FILSPARI [Suspect]
     Active Substance: SPARSENTAN
     Indication: IgA nephropathy
     Route: 048
     Dates: start: 202407
  2. FILSPARI [Suspect]
     Active Substance: SPARSENTAN
     Dosage: LOT NUMBER: 1979025, EXPIRY DATE: 30-AUG-2026
     Route: 048
     Dates: start: 202407
  3. TARPEYO [Suspect]
     Active Substance: BUDESONIDE
     Dates: start: 202407

REACTIONS (5)
  - Abdominal discomfort [Recovered/Resolved]
  - Therapeutic response unexpected [Unknown]
  - Erythema [None]
  - Swelling face [None]
  - Rash macular [Unknown]

NARRATIVE: CASE EVENT DATE: 20240801
